FAERS Safety Report 23303710 (Version 8)
Quarter: 2024Q3

REPORT INFORMATION
  Report Type: Report from Study
  Country: CN (occurrence: CN)
  Receive Date: 20231215
  Receipt Date: 20240723
  Transmission Date: 20241017
  Serious: No
  Sender: MERCK
  Company Number: CN-009507513-2312CHN004111

PATIENT
  Age: 51 Year
  Sex: Male
  Weight: 90 kg

DRUGS (10)
  1. ERTUGLIFLOZIN [Suspect]
     Active Substance: ERTUGLIFLOZIN
     Indication: Diabetes mellitus
     Dosage: UNK
     Route: 048
     Dates: start: 20231030, end: 20231231
  2. METFORMIN HYDROCHLORIDE\SITAGLIPTIN PHOSPHATE [Concomitant]
     Active Substance: METFORMIN HYDROCHLORIDE\SITAGLIPTIN PHOSPHATE
     Dosage: UNK
     Route: 048
     Dates: start: 20231030, end: 20231203
  3. NIFEDIPINE [Concomitant]
     Active Substance: NIFEDIPINE
     Indication: Hyperlipidaemia
     Dosage: UNK
     Route: 048
     Dates: start: 20231030
  4. ROSUVASTATIN CALCIUM [Concomitant]
     Active Substance: ROSUVASTATIN CALCIUM
     Indication: Hyperlipidaemia
     Dosage: UNK
     Route: 048
     Dates: start: 20231030, end: 20240114
  5. ASPIRIN [Concomitant]
     Active Substance: ASPIRIN
     Indication: Hyperlipidaemia
     Dosage: UNK
     Route: 048
     Dates: start: 20231030, end: 20240114
  6. METFORMIN HYDROCHLORIDE [Concomitant]
     Active Substance: METFORMIN HYDROCHLORIDE
     Indication: Diabetes mellitus
     Dosage: UNK
     Route: 048
     Dates: start: 20231204
  7. EZETIMIBE [Concomitant]
     Active Substance: EZETIMIBE
     Indication: Hyperlipidaemia
     Dosage: UNK
     Route: 048
     Dates: start: 20231030, end: 20231203
  8. METOPROLOL SUCCINATE [Concomitant]
     Active Substance: METOPROLOL SUCCINATE
     Indication: Hypertension
     Dosage: UNK
     Route: 048
     Dates: start: 20231030, end: 20231203
  9. ACIPIMOX [Concomitant]
     Active Substance: ACIPIMOX
     Indication: Hyperlipidaemia
     Dosage: UNK
     Route: 048
     Dates: start: 20231030, end: 20231203
  10. DILTIAZEM HYDROCHLORIDE [Concomitant]
     Active Substance: DILTIAZEM HYDROCHLORIDE
     Indication: Hypertension
     Dosage: UNK
     Route: 048
     Dates: start: 20231204, end: 20240114

REACTIONS (1)
  - Urine ketone body present [Recovered/Resolved]

NARRATIVE: CASE EVENT DATE: 20231204
